FAERS Safety Report 7245701-5 (Version None)
Quarter: 2011Q1

REPORT INFORMATION
  Report Type: 
  Country: None (occurrence: None)
  Receive Date: 20110126
  Receipt Date: 20110118
  Transmission Date: 20110831
  Serious: Yes (Other)
  Sender: FDA-Public Use
  Company Number: JP-JNJFOC-20101106248

PATIENT
  Age: 60 Year
  Sex: Female
  Weight: 53 kg

DRUGS (30)
  1. PRIMPERAN TAB [Concomitant]
     Indication: PROPHYLAXIS
     Route: 048
  2. DECADRON [Concomitant]
     Route: 042
  3. GLUCOSE [Concomitant]
     Route: 042
  4. DOXORUBICIN HCL [Suspect]
     Dosage: CYCLE 8
     Route: 042
  5. GLUCOSE [Concomitant]
     Indication: PROPHYLAXIS
     Route: 042
  6. DECADRON [Concomitant]
     Route: 042
  7. GLUCOSE [Concomitant]
     Route: 042
  8. GLUCOSE [Concomitant]
     Route: 042
  9. DOXORUBICIN HCL [Suspect]
     Indication: OVARIAN CANCER RECURRENT
     Dosage: CYCLE 2
     Route: 042
  10. DOXORUBICIN HCL [Suspect]
     Dosage: CYCLE 6
     Route: 042
  11. HACHIAZULE [Concomitant]
     Indication: PROPHYLAXIS
     Route: 049
  12. DOXORUBICIN HCL [Suspect]
     Dosage: CYCLE 4
     Route: 042
  13. DOXORUBICIN HCL [Suspect]
     Dosage: CYCLE 1
     Route: 042
  14. DECADRON [Concomitant]
     Route: 042
  15. DECADRON [Concomitant]
     Route: 042
  16. GLUCOSE [Concomitant]
     Route: 042
  17. GLUCOSE [Concomitant]
     Route: 042
  18. HIRUDOID CREAM [Concomitant]
     Indication: PRODUCT USED FOR UNKNOWN INDICATION
     Route: 061
  19. ANTEBATE [Concomitant]
     Indication: PRODUCT USED FOR UNKNOWN INDICATION
     Route: 061
  20. GLUCOSE [Concomitant]
     Route: 042
  21. DOXORUBICIN HCL [Suspect]
     Dosage: CYCLE 7
     Route: 042
  22. DOXORUBICIN HCL [Suspect]
     Dosage: CYCLE 9
     Route: 042
  23. DECADRON [Concomitant]
     Indication: PROPHYLAXIS
     Route: 042
  24. DECADRON [Concomitant]
     Route: 042
  25. DOXORUBICIN HCL [Suspect]
     Dosage: CYCLE 3
     Route: 042
  26. DOXORUBICIN HCL [Suspect]
     Dosage: CYCLE 5
     Route: 042
  27. DECADRON [Concomitant]
     Route: 042
  28. DECADRON [Concomitant]
     Route: 042
  29. GLUCOSE [Concomitant]
     Route: 042
  30. GLUCOSE [Concomitant]
     Route: 042

REACTIONS (1)
  - PERIPHERAL SENSORY NEUROPATHY [None]
